FAERS Safety Report 6710023-5 (Version None)
Quarter: 2010Q2

REPORT INFORMATION
  Report Type: 
  Country: None (occurrence: None)
  Receive Date: 20100430
  Receipt Date: 20100416
  Transmission Date: 20101027
  Serious: Yes (Other)
  Sender: FDA-Public Use
  Company Number: 2010-1309

PATIENT
  Age: 12 Year
  Sex: Male

DRUGS (1)
  1. INCRELEX [Suspect]
     Indication: INSULIN-LIKE GROWTH FACTOR DECREASED
     Dosage: 10 MG/ML, SUBCUTANEOUS
     Route: 058

REACTIONS (3)
  - ERYTHEMA [None]
  - INDURATION [None]
  - PRURITUS [None]
